FAERS Safety Report 19561873 (Version 1)
Quarter: 2021Q3

REPORT INFORMATION
  Report Type: Spontaneous
  Country: US (occurrence: US)
  Receive Date: 20210715
  Receipt Date: 20210715
  Transmission Date: 20211014
  Serious: Yes (Death)
  Sender: FDA-Public Use
  Company Number: US-FRESENIUS KABI-FK202107292

PATIENT
  Age: 2 Year
  Sex: Female

DRUGS (12)
  1. SODIUM BICARBONATE. [Concomitant]
     Active Substance: SODIUM BICARBONATE
     Indication: STATUS EPILEPTICUS
     Route: 042
  2. LEVETIRACETAM. [Concomitant]
     Active Substance: LEVETIRACETAM
     Indication: STATUS EPILEPTICUS
     Dosage: LOAD
  3. VASOPRESSIN. [Concomitant]
     Active Substance: VASOPRESSIN
     Indication: SHOCK
  4. SODIUM CHLORIDE. [Concomitant]
     Active Substance: SODIUM CHLORIDE
     Indication: STATUS EPILEPTICUS
     Dosage: 20 CC/KG
     Route: 042
  5. EPINEPHRINE. [Concomitant]
     Active Substance: EPINEPHRINE
     Indication: STATUS EPILEPTICUS
  6. ANGIOTENSIN II [Concomitant]
     Active Substance: ANGIOTENSIN II
     Indication: SHOCK
  7. LACTULOSE (MANUFACTURER UNKNOWN) [Suspect]
     Active Substance: LACTULOSE
     Indication: HYPERAMMONAEMIA
     Dosage: EXTRA DOSES
  8. OXYGEN. [Concomitant]
     Active Substance: OXYGEN
     Indication: STATUS EPILEPTICUS
  9. LORAZEPAM. [Concomitant]
     Active Substance: LORAZEPAM
     Indication: STATUS EPILEPTICUS
     Dosage: 2 DOSE
  10. FOSPHENYTOIN [Concomitant]
     Active Substance: FOSPHENYTOIN
     Indication: STATUS EPILEPTICUS
  11. SODIUM BICARBONATE. [Concomitant]
     Active Substance: SODIUM BICARBONATE
     Route: 040
  12. NOREPINEPHRINE. [Concomitant]
     Active Substance: NOREPINEPHRINE
     Indication: SHOCK

REACTIONS (2)
  - Accidental overdose [Fatal]
  - Electrolyte imbalance [Fatal]
